FAERS Safety Report 5525030-8 (Version None)
Quarter: 2007Q4

REPORT INFORMATION
  Report Type: 
  Country: None (occurrence: None)
  Receive Date: 20071119
  Receipt Date: 20071114
  Transmission Date: 20080405
  Serious: Yes (Other)
  Sender: FDA-Public Use
  Company Number: 2007BI019983

PATIENT
  Age: 24 Year
  Sex: Female
  Weight: 98.8842 kg

DRUGS (7)
  1. NATALIZUMAB [Suspect]
     Indication: MULTIPLE SCLEROSIS
     Dosage: 300 MG;QM;IV
     Route: 042
     Dates: start: 20070822, end: 20070822
  2. LEXAPRO [Concomitant]
  3. DARVOCET-N 100 [Concomitant]
  4. VICODIN [Concomitant]
  5. ALBUTEROL [Concomitant]
  6. CIPRO [Concomitant]
  7. NYSTATIN [Concomitant]

REACTIONS (22)
  - BACK PAIN [None]
  - BACTERIURIA [None]
  - BLOOD GLUCOSE DECREASED [None]
  - CHEST DISCOMFORT [None]
  - CHEST PAIN [None]
  - CHOLECYSTITIS [None]
  - CONSTIPATION [None]
  - DIARRHOEA [None]
  - DYSPHONIA [None]
  - DYSPNOEA [None]
  - EYE PAIN [None]
  - HEADACHE [None]
  - LARYNGITIS [None]
  - MALAISE [None]
  - MUSCLE SPASMS [None]
  - NAUSEA [None]
  - NEUTROPHIL PERCENTAGE DECREASED [None]
  - PANCREATITIS ACUTE [None]
  - SOMNOLENCE [None]
  - VOMITING [None]
  - WHEEZING [None]
  - WHITE BLOOD CELL COUNT DECREASED [None]
